FAERS Safety Report 8827281 (Version 1)
Quarter: 2012Q4

REPORT INFORMATION
  Report Type: Report from Study
  Country: JP (occurrence: JP)
  Receive Date: 20121008
  Receipt Date: 20121008
  Transmission Date: 20130627
  Serious: Yes (Hospitalization, Other)
  Sender: FDA-Public Use
  Company Number: JP-009507513-1210JPN000994

PATIENT
  Age: 63 Year
  Sex: Male
  Weight: 63 kg

DRUGS (11)
  1. PEGINTRON [Suspect]
     Indication: HEPATITIS C
     Dosage: 100 Microgram, qw
     Route: 058
     Dates: start: 20120721, end: 20120730
  2. REBETOL [Suspect]
     Indication: HEPATITIS C
     Dosage: 800 mg, qd
     Route: 048
     Dates: start: 20120721, end: 20120730
  3. TELAVIC [Suspect]
     Indication: HEPATITIS C
     Dosage: 1500 mg, qd
     Route: 048
     Dates: start: 20120721, end: 20120730
  4. URSO [Concomitant]
     Indication: HEPATITIS C
     Dosage: 600 mg, qd
     Route: 048
  5. LORFENAMIN [Concomitant]
     Indication: PROPHYLAXIS
     Dosage: 180 mg, qd
     Route: 048
  6. MUCOSTA [Concomitant]
     Indication: PROPHYLAXIS
     Dosage: 300 mg, qd
     Route: 048
     Dates: end: 20120728
  7. PIOGLITAZONE HYDROCHLORIDE [Concomitant]
     Indication: DIABETES MELLITUS
     Dosage: 30 mg, qd
     Route: 048
  8. JANUVIA TABLETS 100MG [Concomitant]
     Indication: DIABETES MELLITUS
     Dosage: 100 mg, qd
     Route: 048
  9. OLMETEC [Concomitant]
     Indication: HYPERTENSION
     Dosage: 20 mg, qd
     Route: 048
  10. GLIMEPIRIDE [Concomitant]
     Indication: DIABETES MELLITUS
     Dosage: 2 mg, qd
     Route: 048
  11. MEDET [Concomitant]
     Indication: DIABETES MELLITUS
     Dosage: 750 mg, UNK
     Route: 048
     Dates: end: 20120728

REACTIONS (3)
  - Hyperkalaemia [Recovered/Resolved]
  - Anaemia [Not Recovered/Not Resolved]
  - Epistaxis [Recovered/Resolved]
